FAERS Safety Report 15584735 (Version 1)
Quarter: 2018Q4

REPORT INFORMATION
  Report Type: Spontaneous
  Country: NL (occurrence: NL)
  Receive Date: 20181102
  Receipt Date: 20181102
  Transmission Date: 20190205
  Serious: Yes (Other)
  Sender: FDA-Public Use
  Company Number: NL-TEVA-2018-NL-971214

PATIENT
  Sex: Female

DRUGS (2)
  1. VANCOMYCINE POEDER VOOR INFUUS, 500 MG (MILLIGRAM) [Suspect]
     Active Substance: VANCOMYCIN
     Indication: ANTIBIOTIC PROPHYLAXIS
     Dosage: 1 DOSAGE FORMS DAILY; 1X DAAGS 1 INFUSIE
     Route: 065
     Dates: start: 201809
  2. EIGEN MEDICATIE [Concomitant]

REACTIONS (1)
  - Arrhythmia [Recovered/Resolved]
